FAERS Safety Report 21537734 (Version 1)
Quarter: 2022Q4

REPORT INFORMATION
  Report Type: Spontaneous
  Country: US (occurrence: US)
  Receive Date: 20221101
  Receipt Date: 20221101
  Transmission Date: 20230113
  Serious: No
  Sender: FDA-Public Use
  Company Number: US-SA-SAC20221027001546

PATIENT
  Age: 61 Year
  Sex: Female

DRUGS (1)
  1. DUPIXENT [Suspect]
     Active Substance: DUPILUMAB
     Dosage: 300MG, OTHER
     Route: 058
     Dates: start: 202103

REACTIONS (6)
  - Infection [Unknown]
  - Fatigue [Unknown]
  - Pyrexia [Unknown]
  - Hypokinesia [Unknown]
  - Myalgia [Unknown]
  - Arthralgia [Unknown]
